FAERS Safety Report 8384347-2 (Version None)
Quarter: 2012Q2

REPORT INFORMATION
  Report Type: 
  Country: None (occurrence: None)
  Receive Date: 20120524
  Receipt Date: 20120516
  Transmission Date: 20120825
  Serious: Yes (Hospitalization, Other)
  Sender: FDA-Public Use
  Company Number: US-ASTRAZENECA-2012SE31761

PATIENT
  Age: 64 Year
  Sex: Female

DRUGS (2)
  1. COUMADIN [Concomitant]
  2. SYMBICORT [Suspect]
     Route: 055

REACTIONS (2)
  - ULCER HAEMORRHAGE [None]
  - INTESTINAL OBSTRUCTION [None]
